FAERS Safety Report 11927388 (Version 1)
Quarter: 2016Q1

REPORT INFORMATION
  Report Type: Spontaneous
  Country: US (occurrence: US)
  Receive Date: 20160119
  Receipt Date: 20160119
  Transmission Date: 20160526
  Serious: No
  Sender: FDA-Public Use
  Company Number: US-PHARMA-MED-USA-POI0580201500072

PATIENT
  Age: 56 Year
  Sex: Female
  Weight: 77.18 kg

DRUGS (2)
  1. POTASSIUM CHLORIDE ORAL SOLUTION [Suspect]
     Active Substance: POTASSIUM CHLORIDE
     Indication: VENTRICULAR TACHYCARDIA
     Dosage: 3 TABLESPOONS WITH 8 OUNCES OF WATER
     Dates: start: 20150819, end: 20150824
  2. AMILORIDE HCL [Concomitant]
     Active Substance: AMILORIDE HYDROCHLORIDE
     Indication: DIURETIC THERAPY
     Dates: start: 1991

REACTIONS (9)
  - Diarrhoea [Recovered/Resolved]
  - Eye swelling [Recovered/Resolved]
  - Drug hypersensitivity [Recovered/Resolved]
  - Muscular weakness [Recovered/Resolved]
  - Crying [Recovered/Resolved]
  - Nervousness [Recovered/Resolved]
  - Alcohol withdrawal syndrome [Recovered/Resolved]
  - Vomiting [Recovered/Resolved]
  - Malaise [Recovered/Resolved]

NARRATIVE: CASE EVENT DATE: 20150822
